FAERS Safety Report 9742719 (Version 1)
Quarter: 2013Q4

REPORT INFORMATION
  Report Type: Spontaneous
  Country: US (occurrence: US)
  Receive Date: 20131210
  Receipt Date: 20131210
  Transmission Date: 20140711
  Serious: No
  Sender: FDA-Public Use
  Company Number: US-GILEAD-2009-0025849

PATIENT
  Sex: Female
  Weight: 101.15 kg

DRUGS (6)
  1. LETAIRIS [Suspect]
     Indication: PULMONARY ARTERIAL HYPERTENSION
     Route: 048
     Dates: start: 20091015, end: 20091202
  2. COUMADIN [Concomitant]
  3. CARDIZEM [Concomitant]
  4. ATIVAN [Concomitant]
  5. PROTONIX [Concomitant]
  6. VITAMIN D3 [Concomitant]

REACTIONS (1)
  - Unevaluable event [Unknown]
